FAERS Safety Report 8397807-5 (Version None)
Quarter: 2012Q2

REPORT INFORMATION
  Report Type: 
  Country: None (occurrence: None)
  Receive Date: 20120531
  Receipt Date: 20120521
  Transmission Date: 20120825
  Serious: Yes (Other)
  Sender: FDA-Public Use
  Company Number: US-US-EMD SERONO, INC.-7134862

PATIENT
  Sex: Male

DRUGS (1)
  1. REBIF [Suspect]
     Indication: MULTIPLE SCLEROSIS
     Route: 058
     Dates: start: 20091118

REACTIONS (6)
  - TYPE 2 DIABETES MELLITUS [None]
  - MUSCULAR WEAKNESS [None]
  - ARTHRALGIA [None]
  - SLEEP APNOEA SYNDROME [None]
  - PAIN IN EXTREMITY [None]
  - NASOPHARYNGITIS [None]
